FAERS Safety Report 12326169 (Version 1)
Quarter: 2016Q2

REPORT INFORMATION
  Report Type: Spontaneous
  Country: US (occurrence: None)
  Receive Date: 20160502
  Receipt Date: 20160502
  Transmission Date: 20160815
  Serious: No
  Sender: FDA-Public Use
  Company Number: None

PATIENT
  Age: 51 Year
  Sex: Female

DRUGS (6)
  1. IBRANCE [Suspect]
     Active Substance: PALBOCICLIB
     Indication: NEOPLASM MALIGNANT
     Dosage: I CAP DAILY X 21 PO??7-APR-2016 TO HELD 21 APR 2016
     Route: 048
     Dates: start: 20160407, end: 20160421
  2. LUPRON [Concomitant]
     Active Substance: LEUPROLIDE ACETATE
  3. XGEVA [Concomitant]
     Active Substance: DENOSUMAB
  4. LETROZOLE. [Concomitant]
     Active Substance: LETROZOLE
  5. CARAFATE [Concomitant]
     Active Substance: SUCRALFATE
  6. MS CONT [Concomitant]

REACTIONS (2)
  - Blood count abnormal [None]
  - Therapy cessation [None]

NARRATIVE: CASE EVENT DATE: 20160407
